FAERS Safety Report 9131680 (Version 1)
Quarter: 2013Q1

REPORT INFORMATION
  Report Type: Spontaneous
  Country: US (occurrence: US)
  Receive Date: 20130301
  Receipt Date: 20130301
  Transmission Date: 20140127
  Serious: No
  Sender: FDA-Public Use
  Company Number: US-009507513-1303USA000230

PATIENT
  Age: 25 Year
  Sex: Female

DRUGS (3)
  1. AFRIN [Suspect]
     Indication: SINUS DISORDER
     Dosage: UNK, UNKNOWN
     Route: 045
  2. AFRIN [Suspect]
     Indication: RESPIRATORY TRACT CONGESTION
  3. AFRIN [Suspect]
     Indication: TINNITUS

REACTIONS (3)
  - Throat irritation [Unknown]
  - Condition aggravated [Unknown]
  - Accidental exposure to product [Unknown]
